FAERS Safety Report 24294093 (Version 1)
Quarter: 2024Q3

REPORT INFORMATION
  Report Type: Spontaneous
  Country: US (occurrence: None)
  Receive Date: 20240906
  Receipt Date: 20240906
  Transmission Date: 20241016
  Serious: No
  Sender: DOMPE FARMACEUTICI
  Company Number: US-FARMAPROD-202308-202404-1376

PATIENT
  Sex: Male

DRUGS (18)
  1. OXERVATE [Suspect]
     Active Substance: CENEGERMIN-BKBJ
     Indication: Neurotrophic keratopathy
     Route: 047
     Dates: start: 20240401
  2. OXERVATE [Suspect]
     Active Substance: CENEGERMIN-BKBJ
  3. COLACE [Concomitant]
     Active Substance: DOCUSATE SODIUM
  4. SPIRONOLACTONE [Concomitant]
     Active Substance: SPIRONOLACTONE
  5. XARELTO [Concomitant]
     Active Substance: RIVAROXABAN
  6. TAMSULOSIN HYDROCHLORIDE [Concomitant]
     Active Substance: TAMSULOSIN HYDROCHLORIDE
  7. LEVOTHYROXINE SODIUM [Concomitant]
     Active Substance: LEVOTHYROXINE SODIUM
  8. POTASSIUM CHLORIDE [Concomitant]
     Active Substance: POTASSIUM CHLORIDE
  9. METOPROLOL TARTRATE [Concomitant]
     Active Substance: METOPROLOL TARTRATE
  10. METOLAZONE [Concomitant]
     Active Substance: METOLAZONE
  11. HUMALOG [Concomitant]
     Active Substance: INSULIN LISPRO
     Dosage: VIAL
  12. BUMETANIDE [Concomitant]
     Active Substance: BUMETANIDE
  13. LIPITOR [Concomitant]
     Active Substance: ATORVASTATIN CALCIUM
  14. ALLOPURINOL [Concomitant]
     Active Substance: ALLOPURINOL
  15. ACETAZOLAMIDE [Concomitant]
     Active Substance: ACETAZOLAMIDE
  16. MINERALS\VITAMINS [Concomitant]
     Active Substance: MINERALS\VITAMINS
     Dosage: 2148-113
  17. POLYMYXIN B SULFATE\TRIMETHOPRIM SULFATE [Concomitant]
     Active Substance: POLYMYXIN B SULFATE\TRIMETHOPRIM SULFATE
  18. TRAVOPROST [Concomitant]
     Active Substance: TRAVOPROST

REACTIONS (2)
  - Eye pain [Not Recovered/Not Resolved]
  - Periorbital swelling [Unknown]
